FAERS Safety Report 8240775-7 (Version None)
Quarter: 2012Q1

REPORT INFORMATION
  Report Type: 
  Country: None (occurrence: None)
  Receive Date: 20120328
  Receipt Date: 20120320
  Transmission Date: 20120608
  Serious: Yes (Hospitalization)
  Sender: FDA-Public Use
  Company Number: PHHY2012FR014771

PATIENT
  Sex: Female
  Weight: 60 kg

DRUGS (3)
  1. CYCLOSPORINE [Concomitant]
     Indication: EPISCLERITIS
     Dosage: 1 DRP, TID
     Dates: start: 20100422
  2. GILENYA [Suspect]
     Indication: MULTIPLE SCLEROSIS
     Dosage: 0.5 MG, DAILY
     Route: 048
     Dates: start: 20111214, end: 20120210
  3. SOLU-MEDROL [Suspect]
     Indication: MULTIPLE SCLEROSIS RELAPSE
     Dosage: UNK
     Route: 042
     Dates: start: 20110210, end: 20120212

REACTIONS (4)
  - PALPITATIONS [None]
  - MULTIPLE SCLEROSIS RELAPSE [None]
  - ELECTROCARDIOGRAM ABNORMAL [None]
  - EXTRASYSTOLES [None]
